FAERS Safety Report 16966900 (Version 2)
Quarter: 2019Q4

REPORT INFORMATION
  Report Type: Spontaneous
  Country: US (occurrence: US)
  Receive Date: 20191028
  Receipt Date: 20191108
  Transmission Date: 20200122
  Serious: No
  Sender: FDA-Public Use
  Company Number: US-SA-2019SA296345

PATIENT
  Age: 74 Year
  Sex: Male

DRUGS (1)
  1. TOUJEO [Suspect]
     Active Substance: INSULIN GLARGINE
     Indication: TYPE 2 DIABETES MELLITUS
     Dosage: 34 U, QD EVERY EVENING
     Route: 065
     Dates: start: 201903

REACTIONS (6)
  - Renal disorder [Unknown]
  - Peripheral venous disease [Unknown]
  - Blood glucose increased [Unknown]
  - Injection site scar [Unknown]
  - Injection site pain [Unknown]
  - Device issue [Unknown]
